FAERS Safety Report 9267304 (Version 1)
Quarter: 2013Q2

REPORT INFORMATION
  Report Type: Spontaneous
  Country: US (occurrence: US)
  Receive Date: 20130502
  Receipt Date: 20130502
  Transmission Date: 20140414
  Serious: Yes (Hospitalization, Other)
  Sender: FDA-Public Use
  Company Number: US-BAYER-2013-052163

PATIENT
  Age: 51 Year
  Sex: Female
  Weight: 65.31 kg

DRUGS (15)
  1. YASMIN [Suspect]
  2. GIANVI [Suspect]
  3. YAZ [Suspect]
  4. MULTIVITAMINS [Concomitant]
     Dosage: UNK
     Route: 048
     Dates: start: 20120827
  5. PROBIOTICA [Concomitant]
     Dosage: UNK
     Route: 048
     Dates: start: 20120827
  6. HYDROMET [HOMATROPINE METHYLBROMIDE,HYDROCODONE BITARTRATE] [Concomitant]
     Dosage: 5 ML,  BID
     Route: 048
     Dates: start: 20120827
  7. PROVENTIL HFA [Concomitant]
     Indication: COUGH
     Dosage: 1 PUFF(S), Q4HR
     Dates: start: 20120827
  8. PROVENTIL HFA [Concomitant]
     Indication: WHEEZING
  9. TESSALON [Concomitant]
     Indication: COUGH
     Dosage: 200 MG -1 BID, PRN
     Route: 048
     Dates: start: 20120821
  10. ADVAIR [Concomitant]
     Dosage: 1 PUFF(S), BID
     Dates: start: 20120827
  11. DUONEB [Concomitant]
     Dosage: 0.5-2.5 (3) MG/3ML SOLN
     Dates: start: 20120827
  12. PNEUMOVAX [Concomitant]
     Dosage: UNK
     Route: 030
     Dates: start: 20121012
  13. FLUARIX [Concomitant]
     Dosage: UNK
     Route: 030
     Dates: start: 20121012
  14. ACIDOPHILUS [Concomitant]
  15. FLAXSEED OIL [Concomitant]

REACTIONS (2)
  - Pulmonary embolism [Recovered/Resolved]
  - Cholelithiasis [None]
